FAERS Safety Report 18632358 (Version 1)
Quarter: 2020Q4

REPORT INFORMATION
  Report Type: Spontaneous
  Country: US (occurrence: US)
  Receive Date: 20201217
  Receipt Date: 20201217
  Transmission Date: 20210114
  Serious: No
  Sender: FDA-Public Use
  Company Number: None

PATIENT
  Sex: Female

DRUGS (26)
  1. BENLYSTA [Suspect]
     Active Substance: BELIMUMAB
     Indication: SYSTEMIC LUPUS ERYTHEMATOSUS
     Route: 058
     Dates: start: 20191018
  2. AMILORIDE [Concomitant]
     Active Substance: AMILORIDE
  3. NABUMETONE. [Concomitant]
     Active Substance: NABUMETONE
  4. LEFLUNOMIDE. [Concomitant]
     Active Substance: LEFLUNOMIDE
  5. OXYCODONE [Concomitant]
     Active Substance: OXYCODONE
  6. RELISTOR [Concomitant]
     Active Substance: METHYLNALTREXONE BROMIDE
  7. ADZENYS XR [Concomitant]
  8. CLONAZEP ODT [Concomitant]
  9. ONDANSETRON [Concomitant]
     Active Substance: ONDANSETRON
  10. SUMATRIPTAN. [Concomitant]
     Active Substance: SUMATRIPTAN
  11. TIZANIDINE. [Concomitant]
     Active Substance: TIZANIDINE
  12. BUPROPION. [Concomitant]
     Active Substance: BUPROPION
  13. LEVOTHYROXIN [Concomitant]
     Active Substance: LEVOTHYROXINE
  14. NITROFURANTIN [Concomitant]
     Active Substance: NITROFURANTOIN
  15. ROSUVASTATIN. [Concomitant]
     Active Substance: ROSUVASTATIN
  16. ALBUTEROL NEB [Concomitant]
     Active Substance: ALBUTEROL
  17. HYDROXYCHLOR [Concomitant]
     Active Substance: HYDROXYCHLOROQUINE
  18. TRAZODONE [Concomitant]
     Active Substance: TRAZODONE HYDROCHLORIDE
  19. DICYLOMINE [Concomitant]
  20. GABEPENTIN [Concomitant]
     Active Substance: GABAPENTIN
  21. PANTOPRAZOLE [Concomitant]
     Active Substance: PANTOPRAZOLE
  22. BREO ELLPITA INH [Concomitant]
  23. FOLIC ACID. [Concomitant]
     Active Substance: FOLIC ACID
  24. PREDNISONE. [Concomitant]
     Active Substance: PREDNISONE
  25. SLOW-MAG [Concomitant]
     Active Substance: MAGNESIUM CHLORIDE
  26. VENLAFAXINE [Concomitant]
     Active Substance: VENLAFAXINE HYDROCHLORIDE

REACTIONS (4)
  - Nausea [None]
  - Hip fracture [None]
  - Pelvic fracture [None]
  - Fatigue [None]
